FAERS Safety Report 11397064 (Version 2)
Quarter: 2015Q4

REPORT INFORMATION
  Report Type: Spontaneous
  Country: US (occurrence: US)
  Receive Date: 20150819
  Receipt Date: 20151107
  Transmission Date: 20160304
  Serious: Yes (Other)
  Sender: FDA-Public Use
  Company Number: US-CELGENEUS-163-21880-13061052

PATIENT
  Age: 76 Year
  Sex: Male

DRUGS (4)
  1. REVLIMID [Suspect]
     Active Substance: LENALIDOMIDE
     Indication: MYELODYSPLASTIC SYNDROME
     Route: 048
     Dates: start: 20080328
  2. REVLIMID [Suspect]
     Active Substance: LENALIDOMIDE
     Route: 048
     Dates: start: 201212, end: 201405
  3. REVLIMID [Suspect]
     Active Substance: LENALIDOMIDE
     Dosage: 5-10MG
     Route: 048
     Dates: start: 200901
  4. REVLIMID [Suspect]
     Active Substance: LENALIDOMIDE
     Dosage: 5-2.5MG
     Route: 048
     Dates: start: 201106, end: 2012

REACTIONS (2)
  - Diarrhoea [Not Recovered/Not Resolved]
  - No therapeutic response [Recovering/Resolving]

NARRATIVE: CASE EVENT DATE: 20130605
